FAERS Safety Report 25604107 (Version 1)
Quarter: 2025Q3

REPORT INFORMATION
  Report Type: Spontaneous
  Country: EU (occurrence: EU)
  Receive Date: 20250725
  Receipt Date: 20250725
  Transmission Date: 20251021
  Serious: Yes (Hospitalization, Other)
  Sender: CELLTRION
  Company Number: None

PATIENT

DRUGS (23)
  1. INFLIXIMAB [Suspect]
     Active Substance: INFLIXIMAB
     Indication: Crohn^s disease
     Route: 042
     Dates: start: 20230626, end: 20231004
  2. INFLIXIMAB [Suspect]
     Active Substance: INFLIXIMAB
     Indication: Crohn^s disease
     Dosage: 120 MG, EVERY 2 WEEK
     Route: 058
     Dates: start: 20231127, end: 20241212
  3. PYRAZINAMIDE [Suspect]
     Active Substance: PYRAZINAMIDE
     Indication: Pulmonary tuberculosis
     Route: 048
     Dates: start: 20250116, end: 20250315
  4. RIMIFON [Suspect]
     Active Substance: ISONIAZID
     Indication: Pulmonary tuberculosis
     Route: 048
     Dates: start: 20250116, end: 20250315
  5. RIFABUTIN [Suspect]
     Active Substance: RIFABUTIN
     Indication: Pulmonary tuberculosis
     Route: 048
     Dates: start: 20250116, end: 20250315
  6. ETHAMBUTOL HYDROCHLORIDE [Suspect]
     Active Substance: ETHAMBUTOL HYDROCHLORIDE
     Indication: Pulmonary tuberculosis
     Route: 048
     Dates: start: 20250116, end: 20250224
  7. ALLOPURINOL [Concomitant]
     Active Substance: ALLOPURINOL
  8. BISOPROLOL [Concomitant]
     Active Substance: BISOPROLOL
  9. COLCHICINE [Concomitant]
     Active Substance: COLCHICINE
  10. DARUNAVIR [Concomitant]
     Active Substance: DARUNAVIR
  11. DOLUTEGRAVIR [Concomitant]
     Active Substance: DOLUTEGRAVIR
  12. ESOMEPRAZOLE [Concomitant]
     Active Substance: ESOMEPRAZOLE
  13. FOLIC ACID [Concomitant]
     Active Substance: FOLIC ACID
  14. LAMIVUDINE [Concomitant]
     Active Substance: LAMIVUDINE
  15. ACETAMINOPHEN [Concomitant]
     Active Substance: ACETAMINOPHEN
  16. PYRIDOXINE [Concomitant]
     Active Substance: PYRIDOXINE
  17. WARFARIN [Concomitant]
     Active Substance: WARFARIN
  18. TINZAPARIN SODIUM [Concomitant]
     Active Substance: TINZAPARIN SODIUM
  19. NORVIR [Concomitant]
     Active Substance: RITONAVIR
  20. ROSUVASTATIN [Concomitant]
     Active Substance: ROSUVASTATIN
  21. CETIRIZINE [Concomitant]
     Active Substance: CETIRIZINE HYDROCHLORIDE
  22. IRBESARTAN [Concomitant]
     Active Substance: IRBESARTAN
  23. AMLODIPINE [Concomitant]
     Active Substance: AMLODIPINE BESYLATE

REACTIONS (1)
  - Immune reconstitution inflammatory syndrome [Recovering/Resolving]

NARRATIVE: CASE EVENT DATE: 20250220
